FAERS Safety Report 4994294-1 (Version None)
Quarter: 2006Q2

REPORT INFORMATION
  Report Type: 
  Country: None (occurrence: None)
  Receive Date: 20060503
  Receipt Date: 20060420
  Transmission Date: 20061013
  Serious: Yes (Other)
  Sender: FDA-Public Use
  Company Number: 2006031090

PATIENT
  Age: 65 Year
  Sex: Male
  Weight: 69 kg

DRUGS (17)
  1. VIAGRA [Suspect]
     Indication: ERECTILE DYSFUNCTION
     Dosage: 50 MG, ORAL
     Route: 048
     Dates: start: 20050901, end: 20051001
  2. CORDARONE [Suspect]
     Indication: ATRIAL FIBRILLATION
     Dosage: 200 MG (200 MG, 1 IN 1 D), ORAL
     Route: 048
     Dates: start: 20051104, end: 20060228
  3. AVELOX [Suspect]
     Indication: BRONCHITIS BACTERIAL
     Dosage: 400 MG (400 MG, 1 IN 1 D), ORAL
     Route: 048
     Dates: start: 20051204, end: 20051214
  4. ASPIRIN [Concomitant]
  5. ATORVASTATIN CALCIUM [Concomitant]
  6. LASIX [Concomitant]
  7. ALDACTONE [Concomitant]
  8. ACCUPRIL [Concomitant]
  9. DIGOXIN [Concomitant]
  10. ASPIRIN [Concomitant]
  11. PLAVIX [Concomitant]
  12. SYMBICORT (BUDESONIDE, FORMOTEROL FUMARATE) [Concomitant]
  13. SPIRIVA [Concomitant]
  14. PREDNISONE TAB [Concomitant]
  15. CALCIUM D3 ^STADA^ (CALCIUM, COLECALCIFEROL) [Concomitant]
  16. ACETYLCYSTEINE [Concomitant]
  17. ATROVENT [Concomitant]

REACTIONS (10)
  - BRONCHITIS BACTERIAL [None]
  - CHRONIC OBSTRUCTIVE PULMONARY DISEASE [None]
  - CONDITION AGGRAVATED [None]
  - DIASTOLIC DYSFUNCTION [None]
  - INFECTION [None]
  - MITRAL VALVE INCOMPETENCE [None]
  - MITRAL VALVE STENOSIS [None]
  - OPTIC ISCHAEMIC NEUROPATHY [None]
  - PAPILLOEDEMA [None]
  - VENTRICULAR HYPERTROPHY [None]
